FAERS Safety Report 5993961-0 (Version None)
Quarter: 2008Q4

REPORT INFORMATION
  Report Type: 
  Country: None (occurrence: None)
  Receive Date: 20081212
  Receipt Date: 20081208
  Transmission Date: 20090506
  Serious: Yes (Hospitalization)
  Sender: FDA-Public Use
  Company Number: B0502267A

PATIENT
  Age: 49 Year
  Sex: Male
  Weight: 166 kg

DRUGS (10)
  1. ALKERAN [Suspect]
     Indication: CORD BLOOD TRANSPLANT THERAPY
     Dosage: 70MGM2 PER DAY
     Route: 042
     Dates: start: 20050129, end: 20050130
  2. FLUDARABINE PHOSPHATE [Concomitant]
     Indication: CORD BLOOD TRANSPLANT THERAPY
     Dosage: 30MGM2 PER DAY
     Route: 042
     Dates: start: 20050126, end: 20050130
  3. GRAN [Concomitant]
     Dates: start: 20050204, end: 20050218
  4. TACROLIMUS [Concomitant]
     Dosage: .03MGK PER DAY
     Route: 065
     Dates: start: 20050131, end: 20051031
  5. METHOTREXATE [Concomitant]
     Dosage: 15MG PER DAY
     Route: 065
     Dates: start: 20050202, end: 20050207
  6. OMEPRAL [Concomitant]
     Dosage: 20MG PER DAY
     Route: 048
     Dates: start: 20050105
  7. CRAVIT [Concomitant]
     Dosage: 300MG PER DAY
     Route: 048
     Dates: start: 20050120, end: 20050208
  8. DIFLUCAN [Concomitant]
     Dosage: 200MG PER DAY
     Route: 048
     Dates: start: 20050120, end: 20050228
  9. ZOVIRAX [Concomitant]
     Dosage: 1000MG PER DAY
     Route: 048
     Dates: start: 20050205, end: 20050218
  10. MIGSIS [Concomitant]
     Dosage: 10MG PER DAY
     Route: 048
     Dates: start: 20050120

REACTIONS (2)
  - ANOREXIA [None]
  - VOMITING [None]
